FAERS Safety Report 10078525 (Version 1)
Quarter: 2014Q2

REPORT INFORMATION
  Report Type: Report from Study
  Country: US (occurrence: US)
  Receive Date: 20140415
  Receipt Date: 20140415
  Transmission Date: 20141212
  Serious: Yes (Hospitalization)
  Sender: FDA-Public Use
  Company Number: US-JNJFOC-20140406713

PATIENT
  Age: 16 Year
  Sex: Male
  Weight: 51.5 kg

DRUGS (10)
  1. REMICADE [Suspect]
     Indication: INFLAMMATORY BOWEL DISEASE
     Route: 042
     Dates: start: 20060810
  2. HUMIRA [Concomitant]
     Route: 065
     Dates: start: 20080909, end: 20090909
  3. CIMZIA [Concomitant]
     Route: 065
     Dates: start: 20100526, end: 20101012
  4. STEROIDS NOS [Concomitant]
     Route: 065
  5. AZATHIOPRINE [Concomitant]
     Route: 065
  6. ATENOLOL [Concomitant]
     Route: 065
  7. VITAMIN D3 [Concomitant]
     Route: 065
  8. LEVSIN [Concomitant]
     Route: 065
  9. NALTREXONE [Concomitant]
     Route: 065
  10. PREDNISONE [Concomitant]
     Route: 065

REACTIONS (1)
  - Anal skin tags [Recovered/Resolved]
